FAERS Safety Report 17943216 (Version 2)
Quarter: 2020Q3

REPORT INFORMATION
  Report Type: Spontaneous
  Country: US (occurrence: US)
  Receive Date: 20200625
  Receipt Date: 20200713
  Transmission Date: 20201103
  Serious: Yes (Hospitalization)
  Sender: FDA-Public Use
  Company Number: US-TASMAN PHARMA, INC.-2020TSM00250

PATIENT
  Age: 48 Year
  Sex: Female

DRUGS (3)
  1. VERSACLOZ [Suspect]
     Active Substance: CLOZAPINE
     Indication: SCHIZOAFFECTIVE DISORDER BIPOLAR TYPE
     Dosage: 100 MG, 1X/DAY IN THE AM
     Route: 048
     Dates: start: 2020
  2. UNSPECIFIED MEDICATIONS [Concomitant]
     Active Substance: UNSPECIFIED INGREDIENT
  3. VERSACLOZ [Suspect]
     Active Substance: CLOZAPINE
     Dosage: 200 MG, 1X/DAY IN THE EVENING
     Route: 048
     Dates: start: 2020

REACTIONS (1)
  - Psychotic disorder [Not Recovered/Not Resolved]

NARRATIVE: CASE EVENT DATE: 202006
